FAERS Safety Report 6538318-9 (Version None)
Quarter: 2010Q1

REPORT INFORMATION
  Report Type: 
  Country: None (occurrence: None)
  Receive Date: 20100114
  Receipt Date: 20100107
  Transmission Date: 20100710
  Serious: Yes (Hospitalization)
  Sender: FDA-Public Use
  Company Number: IT-ABBOTT-10P-083-0617854-00

PATIENT
  Sex: Female

DRUGS (3)
  1. CLARITHROMYCIN [Suspect]
     Indication: HELICOBACTER INFECTION
     Route: 048
     Dates: start: 20090409, end: 20090409
  2. AUGMENTIN [Suspect]
     Indication: HELICOBACTER INFECTION
  3. NEXIUM [Suspect]
     Indication: HELICOBACTER INFECTION
     Route: 048
     Dates: start: 20090409, end: 20090409

REACTIONS (4)
  - FEELING HOT [None]
  - NAUSEA [None]
  - RETCHING [None]
  - TREMOR [None]
